FAERS Safety Report 24334180 (Version 2)
Quarter: 2024Q3

REPORT INFORMATION
  Report Type: Spontaneous
  Country: CN (occurrence: CN)
  Receive Date: 20240918
  Receipt Date: 20240924
  Transmission Date: 20241016
  Serious: Yes (Hospitalization)
  Sender: JOHNSON AND JOHNSON
  Company Number: CN-JNJFOC-20240923419

PATIENT
  Age: 87 Year
  Sex: Female

DRUGS (11)
  1. DARATUMUMAB [Suspect]
     Active Substance: DARATUMUMAB
     Indication: Plasma cell myeloma
     Route: 041
     Dates: start: 20240824, end: 20240824
  2. DEXAMETHASONE [Suspect]
     Active Substance: DEXAMETHASONE
     Indication: Plasma cell myeloma
  3. LORATADINE [Concomitant]
     Active Substance: LORATADINE
  4. INDOMETHACIN [Concomitant]
     Active Substance: INDOMETHACIN
  5. THROMBIN [Concomitant]
     Active Substance: THROMBIN
     Indication: Haemostasis
     Dates: start: 20240825, end: 20240828
  6. OMEPRAZOLE SODIUM [Concomitant]
     Active Substance: OMEPRAZOLE SODIUM
     Indication: Antacid therapy
     Dates: start: 20240825, end: 20240903
  7. OCTREOTIDE [Concomitant]
     Active Substance: OCTREOTIDE\OCTREOTIDE ACETATE
     Dosage: IH Q8H
     Dates: start: 20240826, end: 20240830
  8. THALIDOMIDE [Concomitant]
     Active Substance: THALIDOMIDE
     Route: 048
  9. SODIUM CHLORIDE [Concomitant]
     Active Substance: SODIUM CHLORIDE
     Indication: Haemostasis
     Route: 041
     Dates: start: 20240824, end: 20240824
  10. SODIUM CHLORIDE [Concomitant]
     Active Substance: SODIUM CHLORIDE
     Route: 041
     Dates: start: 20240825, end: 20240828
  11. SODIUM CHLORIDE [Concomitant]
     Active Substance: SODIUM CHLORIDE
     Route: 041
     Dates: start: 20240824, end: 20240824

REACTIONS (2)
  - Myelosuppression [Not Recovered/Not Resolved]
  - Lower gastrointestinal haemorrhage [Not Recovered/Not Resolved]

NARRATIVE: CASE EVENT DATE: 20240825
